FAERS Safety Report 5098611-6 (Version None)
Quarter: 2006Q3

REPORT INFORMATION
  Report Type: 
  Country: None (occurrence: None)
  Receive Date: 20060907
  Receipt Date: 20060829
  Transmission Date: 20061208
  Serious: Yes (Hospitalization)
  Sender: FDA-Public Use
  Company Number: US-JNJFOC-20060806655

PATIENT
  Sex: Male
  Weight: 107.05 kg

DRUGS (12)
  1. FENTANYL TRANSDERMAL SYSTEM [Suspect]
     Indication: ARTHRALGIA
     Route: 062
     Dates: start: 20050101
  2. FENTANYL TRANSDERMAL SYSTEM [Suspect]
     Route: 062
     Dates: start: 20050101
  3. FENTANYL TRANSDERMAL SYSTEM [Suspect]
     Indication: BACK PAIN
     Route: 062
     Dates: start: 20050101
  4. CYMBALTA [Concomitant]
     Indication: DEPRESSION
     Route: 048
     Dates: start: 20050101
  5. WELLBUTRIN SR [Concomitant]
     Indication: DEPRESSION
     Route: 048
     Dates: start: 20050101
  6. NEURONTIN [Concomitant]
     Indication: NEURALGIA
     Route: 048
     Dates: start: 20030101
  7. XANAX [Concomitant]
     Indication: ANXIETY
     Route: 048
     Dates: start: 20040101
  8. FLEXERIL [Concomitant]
     Indication: MUSCLE SPASMS
     Route: 048
     Dates: start: 20040101
  9. PERCOCET [Concomitant]
     Indication: BREAKTHROUGH PAIN
     Dosage: 10-650MG TABLET/5-325MG, 2 EVERY 8 HOURS AS NEEDED.
     Route: 048
     Dates: start: 20040101
  10. CELEBREX [Concomitant]
     Indication: UNEVALUABLE EVENT
     Route: 048
     Dates: start: 20051201
  11. NEXIUM [Concomitant]
     Indication: GASTROINTESTINAL DISORDER
     Route: 048
     Dates: start: 20020101
  12. LEVASIN SL [Concomitant]
     Indication: GASTROINTESTINAL DISORDER
     Route: 060
     Dates: start: 20020101

REACTIONS (10)
  - APPLICATION SITE BLEEDING [None]
  - APPLICATION SITE DISCOLOURATION [None]
  - APPLICATION SITE IRRITATION [None]
  - APPLICATION SITE MASS [None]
  - APPLICATION SITE OEDEMA [None]
  - APPLICATION SITE VESICLES [None]
  - COLITIS [None]
  - HAEMATEMESIS [None]
  - NAUSEA [None]
  - PAIN IN EXTREMITY [None]
